FAERS Safety Report 12988300 (Version 2)
Quarter: 2019Q4

REPORT INFORMATION
  Report Type: Spontaneous
  Country: US (occurrence: US)
  Receive Date: 20161130
  Receipt Date: 20191210
  Transmission Date: 20200122
  Serious: Yes (Other)
  Sender: FDA-Public Use
  Company Number: US-ABBVIE-16P-163-1795375-00

PATIENT
  Sex: Male

DRUGS (3)
  1. SYNTHROID [Suspect]
     Active Substance: LEVOTHYROXINE SODIUM
     Route: 048
  2. SYNTHROID [Suspect]
     Active Substance: LEVOTHYROXINE SODIUM
     Indication: HYPOTHYROIDISM
     Dosage: REDUCED UNKNOWN STRENGTH BY 25MCG
     Route: 048
     Dates: start: 2012, end: 2012
  3. SYNTHROID [Suspect]
     Active Substance: LEVOTHYROXINE SODIUM
     Dosage: INCREASED 75MCG
     Route: 048

REACTIONS (6)
  - Asthenia [Unknown]
  - Blood thyroid stimulating hormone abnormal [Recovered/Resolved]
  - Blood thyroid stimulating hormone abnormal [Unknown]
  - Seizure [Unknown]
  - Syncope [Unknown]
  - Anxiety [Unknown]

NARRATIVE: CASE EVENT DATE: 2012
